FAERS Safety Report 8135898-7 (Version None)
Quarter: 2012Q1

REPORT INFORMATION
  Report Type: 
  Country: None (occurrence: None)
  Receive Date: 20120103
  Receipt Date: 20111105
  Transmission Date: 20120608
  Serious: No
  Sender: FDA-Public Use
  Company Number: AE-2011-003127

PATIENT
  Age: 47 Year
  Sex: Male
  Weight: 72.5755 kg

DRUGS (4)
  1. TYLENOL PM (TYLENOL PM) [Concomitant]
  2. PEGASYS [Concomitant]
  3. RIBAVIRIN [Concomitant]
  4. INCIVEK [Suspect]
     Dosage: 2250 MG (1125 MG, INCORRECT DOSE ADMINISTERED), ORAL
     Route: 048
     Dates: start: 20111104

REACTIONS (1)
  - INFLUENZA LIKE ILLNESS [None]
